FAERS Safety Report 10369259 (Version 1)
Quarter: 2014Q3

REPORT INFORMATION
  Report Type: Spontaneous
  Country: US (occurrence: US)
  Receive Date: 20140807
  Receipt Date: 20140807
  Transmission Date: 20150326
  Serious: Yes (Hospitalization)
  Sender: FDA-Public Use
  Company Number: US-009507513-1407USA013277

PATIENT
  Sex: Female
  Weight: 83.45 kg

DRUGS (1)
  1. NUVARING [Suspect]
     Active Substance: ETHINYL ESTRADIOL\ETONOGESTREL
     Indication: HORMONE REPLACEMENT THERAPY
     Dosage: UNK
     Route: 067
     Dates: start: 20110718

REACTIONS (29)
  - Red cell distribution width increased [Unknown]
  - Aortic valve sclerosis [Unknown]
  - Dizziness [Unknown]
  - Fatigue [Unknown]
  - Feeling cold [Unknown]
  - Paranasal sinus hypersecretion [Unknown]
  - Anxiety [Recovered/Resolved]
  - Depression [Recovered/Resolved]
  - Diarrhoea [Unknown]
  - Splenic infarction [Recovering/Resolving]
  - Memory impairment [Unknown]
  - Pyrexia [Unknown]
  - Weight increased [Unknown]
  - Cardiac aneurysm [Unknown]
  - Osteoarthritis [Unknown]
  - Arthralgia [Unknown]
  - Myalgia [Unknown]
  - Migraine [Unknown]
  - Back pain [Not Recovered/Not Resolved]
  - Headache [Unknown]
  - Nasopharyngitis [Unknown]
  - Off label use [Unknown]
  - Hot flush [Recovering/Resolving]
  - Plasminogen activator inhibitor polymorphism [Unknown]
  - Decreased appetite [Unknown]
  - Renal infarct [Recovering/Resolving]
  - Blood lactate dehydrogenase increased [Unknown]
  - Haemorrhoids [Unknown]
  - Pyrexia [Unknown]

NARRATIVE: CASE EVENT DATE: 20120419
